FAERS Safety Report 14249892 (Version 3)
Quarter: 2018Q1

REPORT INFORMATION
  Report Type: Report from Study
  Country: None (occurrence: ES)
  Receive Date: 20171205
  Receipt Date: 20180102
  Transmission Date: 20180508
  Serious: Yes (Life-Threatening)
  Sender: FDA-Public Use
  Company Number: ES-ABBVIE-17K-144-2182606-00

PATIENT
  Age: 77 Year
  Sex: Male
  Weight: 65 kg

DRUGS (2)
  1. DUODOPA [Suspect]
     Active Substance: CARBIDOPA\LEVODOPA
     Route: 050
     Dates: start: 2017
  2. DUODOPA [Suspect]
     Active Substance: CARBIDOPA\LEVODOPA
     Indication: PARKINSON^S DISEASE
     Route: 050
     Dates: start: 20160928, end: 2017

REACTIONS (8)
  - Peritonitis [Recovering/Resolving]
  - Pneumoperitoneum [Recovering/Resolving]
  - Pyrexia [Recovering/Resolving]
  - Intestinal obstruction [Recovering/Resolving]
  - Abdominal pain [Recovered/Resolved]
  - Gastrointestinal necrosis [Recovering/Resolving]
  - Leukocytosis [Recovering/Resolving]
  - Ascites [Recovering/Resolving]

NARRATIVE: CASE EVENT DATE: 201712
